FAERS Safety Report 22254917 (Version 2)
Quarter: 2023Q4

REPORT INFORMATION
  Report Type: Spontaneous
  Country: IT (occurrence: IT)
  Receive Date: 20230426
  Receipt Date: 20231016
  Transmission Date: 20240109
  Serious: Yes (Hospitalization)
  Sender: FDA-Public Use
  Company Number: IT-SUN PHARMACEUTICAL INDUSTRIES LTD-2023RR-386312

PATIENT
  Age: 86 Year
  Sex: Female
  Weight: 60 kg

DRUGS (2)
  1. OCTREOTIDE [Suspect]
     Active Substance: OCTREOTIDE
     Indication: Gastrointestinal haemorrhage
     Dosage: 100 MICROGRAM, DAILY
     Route: 058
     Dates: start: 20230215, end: 20230223
  2. MESALAMINE [Concomitant]
     Active Substance: MESALAMINE
     Indication: Diverticulum intestinal
     Dosage: 2400 MILLIGRAM
     Route: 048
     Dates: start: 20220210, end: 20230227

REACTIONS (1)
  - Thrombocytopenia [Recovering/Resolving]

NARRATIVE: CASE EVENT DATE: 20230215
